FAERS Safety Report 9176974 (Version 2)
Quarter: 2013Q2

REPORT INFORMATION
  Report Type: Spontaneous
  Country: US (occurrence: US)
  Receive Date: 20130321
  Receipt Date: 20130415
  Transmission Date: 20140414
  Serious: No
  Sender: FDA-Public Use
  Company Number: US-PFIZER INC-2013090570

PATIENT
  Age: 81 Year
  Sex: Male
  Weight: 72.56 kg

DRUGS (10)
  1. TOVIAZ [Suspect]
     Indication: HYPERTONIC BLADDER
     Dosage: 4 MG, 1X/DAY
     Route: 048
     Dates: start: 20130314, end: 20130325
  2. TOVIAZ [Suspect]
     Indication: HYPERTONIC BLADDER
  3. OMEPRAZOLE [Concomitant]
     Indication: GASTROINTESTINAL DISORDER
     Dosage: UNK
  4. ALIGN [Concomitant]
     Dosage: UNK
  5. CLONIDINE [Concomitant]
     Dosage: UNK
  6. LORAZEPAM [Concomitant]
     Dosage: UNK
  7. PROSCAR [Concomitant]
     Dosage: UNK
  8. HCTZ [Concomitant]
     Dosage: UNK
  9. ENALAPRIL [Concomitant]
     Dosage: UNK
  10. ZOCOR [Concomitant]
     Dosage: UNK

REACTIONS (5)
  - Abdominal discomfort [Not Recovered/Not Resolved]
  - Dry mouth [Recovering/Resolving]
  - Constipation [Not Recovered/Not Resolved]
  - Nausea [Recovering/Resolving]
  - Retching [Not Recovered/Not Resolved]
